FAERS Safety Report 8604192-X (Version None)
Quarter: 2012Q3

REPORT INFORMATION
  Report Type: 
  Country: None (occurrence: None)
  Receive Date: 20120820
  Receipt Date: 20120816
  Transmission Date: 20120928
  Serious: No
  Sender: FDA-Public Use
  Company Number: US-PFIZER INC-2012202103

PATIENT
  Age: 71 Year
  Sex: Female
  Weight: 63.492 kg

DRUGS (5)
  1. LOSARTAN [Concomitant]
     Indication: HYPERTENSION
     Dosage: 50 MG, DAILY
  2. ACETYLSALICYLIC ACID/CARISOPRODOL/CODEINE PHOSPHATE [Suspect]
     Indication: MUSCLE STRAIN
     Dosage: UNK
  3. CHANTIX [Suspect]
     Indication: SMOKING CESSATION THERAPY
     Dosage: UNK
     Route: 048
  4. ACETYLSALICYLIC ACID/CARISOPRODOL/CODEINE PHOSPHATE [Suspect]
     Indication: PAIN
  5. HYDROCHLOROTHIAZIDE [Concomitant]
     Indication: HYPERTENSION
     Dosage: 12.5 MG, DAILY

REACTIONS (5)
  - TENSION [None]
  - NERVOUSNESS [None]
  - EMOTIONAL DISORDER [None]
  - SOMNOLENCE [None]
  - DRUG INEFFECTIVE [None]
